FAERS Safety Report 8489044-0 (Version None)
Quarter: 2012Q3

REPORT INFORMATION
  Report Type: 
  Country: None (occurrence: None)
  Receive Date: 20120705
  Receipt Date: 20120619
  Transmission Date: 20120928
  Serious: Yes (Disabling)
  Sender: FDA-Public Use
  Company Number: IT-PFIZER INC-2012157632

PATIENT
  Age: 34 Year
  Sex: Male

DRUGS (3)
  1. AZITHROMYCIN [Suspect]
     Indication: OROPHARYNGEAL PAIN
     Dosage: 500 MG, 1X/DAY
     Route: 048
     Dates: start: 20120616, end: 20120618
  2. ENTEROLACTIS PLUS [Concomitant]
     Indication: SUPPLEMENTATION THERAPY
     Dosage: UNK
     Dates: start: 20120616, end: 20120618
  3. ACETAMINOPHEN [Suspect]
     Indication: PYREXIA
     Dosage: 2 TABLETS OF 500 MG, 2X/DAY
     Route: 048
     Dates: start: 20120616, end: 20120617

REACTIONS (3)
  - BURNING SENSATION [None]
  - SKIN REACTION [None]
  - HYPOAESTHESIA [None]
